FAERS Safety Report 7414312-0 (Version None)
Quarter: 2011Q2

REPORT INFORMATION
  Report Type: 
  Country: None (occurrence: None)
  Receive Date: 20110411
  Receipt Date: 20110411
  Transmission Date: 20111010
  Serious: Yes (Other)
  Sender: FDA-Public Use
  Company Number: None

PATIENT
  Age: 47 Year
  Sex: Female
  Weight: 52.1637 kg

DRUGS (1)
  1. FEXOFENADINE [Suspect]
     Indication: SEASONAL ALLERGY
     Dosage: 1 TAB QD PO
     Route: 048
     Dates: start: 20110407, end: 20110408

REACTIONS (1)
  - INSOMNIA [None]
